FAERS Safety Report 6519325-9 (Version None)
Quarter: 2009Q4

REPORT INFORMATION
  Report Type: 
  Country: None (occurrence: None)
  Receive Date: 20091228
  Receipt Date: 20091217
  Transmission Date: 20100525
  Serious: Yes (Hospitalization)
  Sender: FDA-Public Use
  Company Number: JP-BAYER-200915135BYL

PATIENT
  Age: 72 Year
  Sex: Male
  Weight: 75 kg

DRUGS (23)
  1. NEXAVAR [Suspect]
     Indication: RENAL CELL CARCINOMA
     Dosage: UNIT DOSE: 200 MG
     Route: 048
     Dates: start: 20090513, end: 20090529
  2. NEXAVAR [Suspect]
     Dosage: UNIT DOSE: 200 MG
     Route: 048
     Dates: start: 20090606, end: 20090610
  3. NEXAVAR [Suspect]
     Dosage: UNIT DOSE: 200 MG
     Route: 048
     Dates: start: 20090611
  4. NEXAVAR [Suspect]
     Route: 048
  5. LOXONIN [Concomitant]
     Indication: PALLIATIVE CARE
     Route: 048
     Dates: start: 20090509
  6. MUCOSTA [Concomitant]
     Route: 048
     Dates: start: 20090509
  7. FLIVAS [Concomitant]
     Route: 048
     Dates: start: 20090509
  8. MICARDIS [Concomitant]
     Route: 048
     Dates: start: 20090509
  9. AMLODIN [Concomitant]
     Route: 048
     Dates: start: 20090509
  10. OMEPRAL [Concomitant]
     Route: 048
     Dates: start: 20090509, end: 20090625
  11. CRESTOR [Concomitant]
     Route: 048
     Dates: start: 20090509
  12. PLAVIX [Concomitant]
     Route: 048
     Dates: start: 20090509
  13. PURSENNID [Concomitant]
     Route: 048
     Dates: start: 20090510
  14. VOLTAREN [Concomitant]
     Indication: PALLIATIVE CARE
     Route: 048
     Dates: start: 20090527, end: 20090611
  15. TAKEPRON [Concomitant]
     Route: 048
     Dates: start: 20090528
  16. LASIX [Concomitant]
     Route: 048
     Dates: start: 20090901
  17. AUGMENTIN [Concomitant]
     Route: 048
     Dates: start: 20091124, end: 20091130
  18. CINOBEZILE [Concomitant]
     Route: 048
     Dates: start: 20091124
  19. ASPARA K [Concomitant]
     Route: 048
     Dates: start: 20091125
  20. ROCEPHIN [Concomitant]
     Dosage: TOTAL DAILY DOSE: 2 G
     Route: 042
     Dates: start: 20091201, end: 20091203
  21. ITRIZOLE [Concomitant]
     Route: 048
     Dates: start: 20091204, end: 20091210
  22. OMEGACIN [Concomitant]
     Dosage: TOTAL DAILY DOSE: 0.6 MG
     Route: 042
     Dates: start: 20091204, end: 20091210
  23. EURODIN [Concomitant]
     Route: 048
     Dates: start: 20091212

REACTIONS (4)
  - HYPERTENSION [None]
  - IMPAIRED HEALING [None]
  - PALMAR-PLANTAR ERYTHRODYSAESTHESIA SYNDROME [None]
  - PLEURAL EFFUSION [None]
